FAERS Safety Report 20367087 (Version 1)
Quarter: 2022Q1

REPORT INFORMATION
  Report Type: Report from Study
  Country: US (occurrence: US)
  Receive Date: 20220123
  Receipt Date: 20220123
  Transmission Date: 20220423
  Serious: Yes (Hospitalization)
  Sender: FDA-Public Use
  Company Number: US-ABBVIE-22K-163-4243470-00

PATIENT
  Sex: Male

DRUGS (3)
  1. IMBRUVICA [Suspect]
     Active Substance: IBRUTINIB
     Indication: Chronic lymphocytic leukaemia
     Route: 048
     Dates: start: 20210908, end: 2021
  2. CALQUENCE [Suspect]
     Active Substance: ACALABRUTINIB
     Indication: Product used for unknown indication
     Route: 065
     Dates: end: 202112
  3. LISINOPRIL [Suspect]
     Active Substance: LISINOPRIL
     Indication: Product used for unknown indication
     Route: 065
     Dates: end: 2021

REACTIONS (3)
  - Angioedema [Unknown]
  - COVID-19 [Unknown]
  - Rash [Unknown]

NARRATIVE: CASE EVENT DATE: 20210101
